FAERS Safety Report 4735167-9 (Version None)
Quarter: 2005Q3

REPORT INFORMATION
  Report Type: 
  Country: None (occurrence: None)
  Receive Date: 20050804
  Receipt Date: 20050722
  Transmission Date: 20060218
  Serious: Yes (Hospitalization, Other)
  Sender: FDA-Public Use
  Company Number: 2005099591

PATIENT
  Age: 70 Year
  Sex: Female
  Weight: 54.8852 kg

DRUGS (4)
  1. ALPRAZOLAM [Suspect]
     Indication: AGORAPHOBIA
  2. ALPRAZOLAM [Suspect]
     Indication: PANIC ATTACK
  3. ANTIHYPERTENSIVES (ANTIHYPERTENSIVES) [Concomitant]
  4. ALL OTHER THERAPEUTIC PRODUCTS (ALL OTHER THERAPEUTIC PRODUCTS) [Concomitant]

REACTIONS (6)
  - ANXIETY [None]
  - AUTOIMMUNE THYROIDITIS [None]
  - BLOOD PRESSURE INCREASED [None]
  - DRUG WITHDRAWAL SYNDROME [None]
  - TENSION [None]
  - THYROID DISORDER [None]
